FAERS Safety Report 19650974 (Version 2)
Quarter: 2021Q4

REPORT INFORMATION
  Report Type: Spontaneous
  Country: JP (occurrence: JP)
  Receive Date: 20210802
  Receipt Date: 20211014
  Transmission Date: 20220304
  Serious: Yes (Death, Hospitalization, Other)
  Sender: FDA-Public Use
  Company Number: JP-MSD-2107JPN002561J

PATIENT
  Age: 7 Decade
  Sex: Male

DRUGS (1)
  1. KEYTRUDA [Suspect]
     Active Substance: PEMBROLIZUMAB
     Indication: Lung adenocarcinoma
     Dosage: UNK
     Route: 041
     Dates: start: 201901, end: 201905

REACTIONS (7)
  - Condition aggravated [Fatal]
  - Biliary dilatation [Unknown]
  - Immune-mediated cholangitis [Unknown]
  - Immune-mediated hepatitis [Unknown]
  - Drug-induced liver injury [Unknown]
  - Erythema multiforme [Unknown]
  - Bacterial infection [Unknown]
